FAERS Safety Report 23979211 (Version 2)
Quarter: 2024Q3

REPORT INFORMATION
  Report Type: Spontaneous
  Country: US (occurrence: US)
  Receive Date: 20240615
  Receipt Date: 20240708
  Transmission Date: 20241016
  Serious: No
  Sender: AMGEN
  Company Number: US-AMGEN-USASP2024116948

PATIENT
  Age: 69 Year
  Sex: Male

DRUGS (2)
  1. REPATHA [Suspect]
     Active Substance: EVOLOCUMAB
     Indication: Low density lipoprotein increased
     Dosage: 140 MILLIGRAM, Q2WK (EVERY 2 WEEKS)
     Route: 058
     Dates: start: 20240430
  2. VITAMINS [Concomitant]
     Active Substance: VITAMINS

REACTIONS (4)
  - Adverse drug reaction [Unknown]
  - Pain in extremity [Unknown]
  - Influenza [Unknown]
  - Night sweats [Unknown]

NARRATIVE: CASE EVENT DATE: 20240101
